FAERS Safety Report 5905377-3 (Version None)
Quarter: 2008Q4

REPORT INFORMATION
  Report Type: 
  Country: None (occurrence: None)
  Receive Date: 20081001
  Receipt Date: 20080922
  Transmission Date: 20090506
  Serious: Yes (Life-Threatening, Other)
  Sender: FDA-Public Use
  Company Number: NL-PFIZER INC-2008079672

PATIENT
  Age: 53 Year
  Sex: Male

DRUGS (2)
  1. SERTRALINE [Suspect]
     Indication: MAJOR DEPRESSION
  2. NAPROXEN [Suspect]

REACTIONS (4)
  - CARCINOMA IN SITU [None]
  - DYSPNOEA [None]
  - HAEMATOMA [None]
  - HAEMORRHAGE [None]
